FAERS Safety Report 4355772-1 (Version None)
Quarter: 2004Q2

REPORT INFORMATION
  Report Type: 
  Country: None (occurrence: None)
  Receive Date: 20040505
  Receipt Date: 20040421
  Transmission Date: 20050107
  Serious: Yes (Other)
  Sender: FDA-Public Use
  Company Number: 2004-BP-03145BP

PATIENT
  Age: 73 Year

DRUGS (1)
  1. MIRAPEX [Suspect]
     Dosage: PO
     Route: 048

REACTIONS (1)
  - PATHOLOGICAL GAMBLING [None]
